FAERS Safety Report 7667335-0 (Version None)
Quarter: 2011Q3

REPORT INFORMATION
  Report Type: 
  Country: None (occurrence: None)
  Receive Date: 20110806
  Receipt Date: 20110719
  Transmission Date: 20111222
  Serious: No
  Sender: FDA-Public Use
  Company Number: US-ABBOTT-11P-163-0836293-00

PATIENT
  Sex: Male

DRUGS (1)
  1. NIASPAN [Suspect]
     Indication: PRODUCT USED FOR UNKNOWN INDICATION
     Dates: start: 20110702, end: 20110704

REACTIONS (5)
  - LOSS OF CONSCIOUSNESS [None]
  - FLUSHING [None]
  - ERYTHEMA [None]
  - SENSORY DISTURBANCE [None]
  - FEELING HOT [None]
